FAERS Safety Report 5722948-8 (Version None)
Quarter: 2008Q2

REPORT INFORMATION
  Report Type: 
  Country: None (occurrence: None)
  Receive Date: 20080428
  Receipt Date: 20080428
  Transmission Date: 20081010
  Serious: Yes (Other)
  Sender: FDA-Public Use
  Company Number: None

PATIENT
  Age: 53 Year
  Sex: Female
  Weight: 83.9154 kg

DRUGS (1)
  1. DIGITEK 0.125 MG. MYLAN [Suspect]
     Indication: ATRIAL TACHYCARDIA
     Dosage: ONE TABLE DAILY PO
     Route: 048
     Dates: start: 20080404, end: 20080426

REACTIONS (3)
  - DRUG EFFECT INCREASED [None]
  - HEART RATE DECREASED [None]
  - PHARMACEUTICAL PRODUCT COMPLAINT [None]
